FAERS Safety Report 25403625 (Version 2)
Quarter: 2025Q3

REPORT INFORMATION
  Report Type: Report from Study
  Country: US (occurrence: US)
  Receive Date: 20250605
  Receipt Date: 20250827
  Transmission Date: 20251021
  Serious: Yes (Hospitalization, Other)
  Sender: ABBVIE
  Company Number: US-ABBVIE-5956340

PATIENT
  Age: 64 Year
  Sex: Male
  Weight: 72 kg

DRUGS (12)
  1. HUMIRA [Suspect]
     Active Substance: ADALIMUMAB
     Indication: Rheumatoid arthritis
     Route: 058
     Dates: start: 2021
  2. HYDROCODONE [Concomitant]
     Active Substance: HYDROCODONE
     Indication: Pain
  3. MAGNESIUM [Concomitant]
     Active Substance: MAGNESIUM
     Indication: Gastric bypass
  4. CALCIUM [Concomitant]
     Active Substance: CALCIUM
     Indication: Bone disorder
  5. Acxarbose [Concomitant]
     Indication: Product used for unknown indication
  6. ROSUVASTATIN [Concomitant]
     Active Substance: ROSUVASTATIN
     Indication: Myopathy
     Dates: start: 20200329
  7. HYDROCHLOROTHIAZIDE [Concomitant]
     Active Substance: HYDROCHLOROTHIAZIDE
     Indication: Chronic kidney disease
     Dates: start: 20221028
  8. POTASSIUM CITRATE [Concomitant]
     Active Substance: POTASSIUM CITRATE
     Indication: Nephrolithiasis
  9. HUMIRA [Concomitant]
     Active Substance: ADALIMUMAB
     Indication: Rheumatoid arthritis
     Dosage: AUTO PEN INJECTION
     Route: 058
     Dates: start: 20211103
  10. TYLENOL [Concomitant]
     Active Substance: ACETAMINOPHEN
     Indication: Pain
     Dosage: 8HR EXTEND RELEASE
     Dates: start: 20220215
  11. VITAMIN B12 [Concomitant]
     Active Substance: CYANOCOBALAMIN
     Indication: Product used for unknown indication
  12. ENTRESTO [Concomitant]
     Active Substance: SACUBITRIL\VALSARTAN
     Indication: Cardiomyopathy
     Dates: start: 20230701

REACTIONS (6)
  - Hypoglycaemia [Not Recovered/Not Resolved]
  - Nephrolithiasis [Recovered/Resolved]
  - Foot deformity [Recovering/Resolving]
  - Pain [Recovering/Resolving]
  - COVID-19 [Recovered/Resolved]
  - Hypermetropia [Unknown]

NARRATIVE: CASE EVENT DATE: 20210101
